FAERS Safety Report 18572350 (Version 2)
Quarter: 2020Q4

REPORT INFORMATION
  Report Type: Spontaneous
  Country: MX (occurrence: MX)
  Receive Date: 20201202
  Receipt Date: 20201211
  Transmission Date: 20210114
  Serious: No
  Sender: FDA-Public Use
  Company Number: MX-TAKEDA-2020TUS053820

PATIENT
  Age: 36 Year
  Sex: Female

DRUGS (14)
  1. LIBERTRIM [TRIMEBUTINE] [Concomitant]
     Indication: COLITIS
     Dosage: UNK
     Route: 065
  2. SIRDALUD [Concomitant]
     Active Substance: TIZANIDINE
     Indication: PAIN
     Dosage: UNK
     Route: 065
  3. DOLO NEUROBION [CYANOCOBALAMIN;DICLOFENAC SODIUM;LIDOCAINE HYDROCHLORI [Concomitant]
     Indication: COLITIS
     Dosage: UNK
     Route: 065
  4. PATANOL [Concomitant]
     Active Substance: OLOPATADINE HYDROCHLORIDE
     Indication: COLITIS
     Dosage: UNK
     Route: 065
  5. VANNAIR [Concomitant]
     Active Substance: BUDESONIDE\FORMOTEROL FUMARATE DIHYDRATE
     Indication: COLITIS
     Dosage: UNK
     Route: 065
  6. KALBITOR [Suspect]
     Active Substance: ECALLANTIDE
     Dosage: 10 UNK
     Route: 058
  7. TAFIROL [KETOPROFEN] [Concomitant]
     Indication: ANTIINFLAMMATORY THERAPY
     Dosage: UNK
     Route: 065
  8. DIMOFLAX [CLEBOPRIDE MALATE;SIMETICONE] [Concomitant]
     Indication: COLITIS
     Dosage: UNK
     Route: 065
  9. TRAMACET [Concomitant]
     Active Substance: ACETAMINOPHEN\TRAMADOL
     Indication: ANTIINFLAMMATORY THERAPY
     Dosage: UNK
     Route: 065
  10. DIPROSPAN [BETAMETHASONE DIPROPIONATE] [Concomitant]
     Active Substance: BETAMETHASONE DIPROPIONATE
     Indication: PAIN
     Dosage: UNK
     Route: 065
  11. MONTELUKAST [Concomitant]
     Active Substance: MONTELUKAST SODIUM
     Indication: COLITIS
     Dosage: UNK
     Route: 065
  12. KALBITOR [Suspect]
     Active Substance: ECALLANTIDE
     Indication: HEREDITARY ANGIOEDEMA
     Dosage: 30 MILLIGRAM
     Route: 058
     Dates: start: 201911
  13. OLUMIANT [Concomitant]
     Active Substance: BARICITINIB
     Indication: ARTHRITIS
     Dosage: UNK
     Route: 065
  14. RINELON [Concomitant]
     Indication: COLITIS
     Dosage: UNK
     Route: 065

REACTIONS (12)
  - Inflammation [Unknown]
  - Headache [Unknown]
  - Irritability [Unknown]
  - Hepatic pain [Unknown]
  - Thirst [Unknown]
  - Tachycardia [Unknown]
  - Off label use [Unknown]
  - Nervousness [Unknown]
  - Urticaria [Unknown]
  - Dizziness [Unknown]
  - Dysgeusia [Unknown]
  - Depression [Unknown]
